FAERS Safety Report 17660059 (Version 1)
Quarter: 2020Q2

REPORT INFORMATION
  Report Type: Spontaneous
  Country: US (occurrence: US)
  Receive Date: 20200413
  Receipt Date: 20200413
  Transmission Date: 20200713
  Serious: Yes (Hospitalization, Other)
  Sender: FDA-Public Use
  Company Number: US-GLENMARK PHARMACEUTICALS-2020GMK046392

PATIENT

DRUGS (2)
  1. RANITIDINE HYDROCHLORIDE. [Suspect]
     Active Substance: RANITIDINE HYDROCHLORIDE
     Indication: GASTROOESOPHAGEAL REFLUX DISEASE
     Dosage: 10 YEARS AGO
     Route: 065
     Dates: start: 2010, end: 202002
  2. VITAMIN D                          /00107901/ [Concomitant]
     Active Substance: ERGOCALCIFEROL
     Indication: PRODUCT USED FOR UNKNOWN INDICATION
     Dosage: UNK
     Route: 065

REACTIONS (8)
  - Injury [Unknown]
  - Adverse event [Unknown]
  - Recalled product administered [Unknown]
  - Prostate cancer [Not Recovered/Not Resolved]
  - Pain [Recovering/Resolving]
  - Ankle fracture [Recovering/Resolving]
  - Back pain [Recovering/Resolving]
  - Vitamin B12 decreased [Unknown]

NARRATIVE: CASE EVENT DATE: 2019
